FAERS Safety Report 9804336 (Version 1)
Quarter: 2014Q1

REPORT INFORMATION
  Report Type: Spontaneous
  Country: CH (occurrence: None)
  Receive Date: 20140106
  Receipt Date: 20140106
  Transmission Date: 20141002
  Serious: Yes (Hospitalization)
  Sender: FDA-Public Use
  Company Number: 2013120075

PATIENT
  Age: 89 Year
  Sex: Female

DRUGS (7)
  1. TOREM [Suspect]
     Indication: HYPERTENSIVE HEART DISEASE
     Dosage: 20 MG (10 MG,2 IN 1 D)
     Route: 048
     Dates: end: 20131127
  2. MICARDIS PLUS [Suspect]
     Indication: HYPERTENSIVE HEART DISEASE
     Route: 048
     Dates: end: 20131127
  3. ASPIRIN (ACETYLSALICYLIC ACID) [Concomitant]
  4. CALCIUM SANODZ D3 FORTE (CALCIUM CARBONATE, COLECALCIFEROL, CALCIUM LACTATE, GLUCONATE) [Concomitant]
  5. SOLEVITA FORTE (HYPERICUM PERFORATUM DRY EXTRACT) [Concomitant]
  6. SERTIDE (FLUTICASONE PROPIONATE, SAMETEROL XINAFOATE) [Concomitant]
  7. VALVERDE FORTE (VALERIAN EXTRACT) [Concomitant]

REACTIONS (12)
  - Transient ischaemic attack [None]
  - Confusional state [None]
  - Nausea [None]
  - Diarrhoea [None]
  - Hypophagia [None]
  - Fluid intake reduced [None]
  - General physical health deterioration [None]
  - Disorientation [None]
  - Hyponatraemia [None]
  - Hypovolaemia [None]
  - Blood osmolarity decreased [None]
  - Drug interaction [None]
